FAERS Safety Report 21302623 (Version 1)
Quarter: 2022Q3

REPORT INFORMATION
  Report Type: Spontaneous
  Country: DK (occurrence: DK)
  Receive Date: 20220907
  Receipt Date: 20220907
  Transmission Date: 20221027
  Serious: Yes (Other)
  Sender: FDA-Public Use
  Company Number: None

PATIENT
  Age: 25 Year
  Sex: Female

DRUGS (1)
  1. MEDROL [Suspect]
     Active Substance: METHYLPREDNISOLONE
     Indication: Encephalitis
     Dosage: DOSE: UNKNOWN (DESCRIBED AS HIGH FROM MAR TO JUN2018 WHERE PHASING-OUT BEGAN)
     Route: 048
     Dates: start: 201803, end: 201809

REACTIONS (2)
  - Spinal compression fracture [Recovered/Resolved]
  - Back pain [Recovered/Resolved]

NARRATIVE: CASE EVENT DATE: 20180901
